FAERS Safety Report 5146765-5 (Version None)
Quarter: 2006Q4

REPORT INFORMATION
  Report Type: 
  Country: None (occurrence: None)
  Receive Date: 20061107
  Receipt Date: 20061107
  Transmission Date: 20070319
  Serious: Yes (Other)
  Sender: FDA-Public Use
  Company Number: None

PATIENT
  Age: 56 Year
  Sex: Male

DRUGS (12)
  1. REVLIMID [Suspect]
     Indication: MULTIPLE MYELOMA
     Dosage: 25 MG DAILY PO
     Route: 048
     Dates: start: 20060831, end: 20060927
  2. ATIVAN [Concomitant]
  3. HYDROMORPHONE [Concomitant]
  4. FENTANYL TRANSDERMAL SYSTEM [Concomitant]
  5. METOCLOPRAMIDE [Concomitant]
  6. FAMOTIDINE [Concomitant]
  7. DEXAMETHASONE TAB [Concomitant]
  8. NASAREL [Concomitant]
  9. IBUPROFEN [Concomitant]
  10. LACTULOSE [Concomitant]
  11. BISACODYL [Concomitant]
  12. DOCUSATE SODIUM [Concomitant]

REACTIONS (2)
  - DYSPHAGIA [None]
  - FAILURE TO THRIVE [None]
